FAERS Safety Report 19094329 (Version 3)
Quarter: 2024Q1

REPORT INFORMATION
  Report Type: Spontaneous
  Country: FI (occurrence: FI)
  Receive Date: 20210406
  Receipt Date: 20240314
  Transmission Date: 20240410
  Serious: Yes (Other)
  Sender: FDA-Public Use
  Company Number: FI-CELLTRION INC.-2021FI004192

PATIENT

DRUGS (7)
  1. INFLIXIMAB [Suspect]
     Active Substance: INFLIXIMAB
     Indication: Oligoarthritis
     Dosage: UNK
     Route: 042
     Dates: start: 201906, end: 20200403
  2. CIMZIA [Suspect]
     Active Substance: CERTOLIZUMAB PEGOL
     Indication: Oligoarthritis
     Dosage: UNK
     Route: 058
     Dates: start: 20200605, end: 202008
  3. FOLIC ACID [Concomitant]
     Active Substance: FOLIC ACID
     Dosage: 5,MG,WEEKLY
     Route: 048
  4. LEVOTHYROXINE [Concomitant]
     Active Substance: LEVOTHYROXINE\LEVOTHYROXINE SODIUM
     Route: 048
  5. PREDNISOLONE [Concomitant]
     Active Substance: PREDNISOLONE
     Dosage: 5,MG,DAILY
     Route: 048
  6. HYDROXYCHLOROQUINE SULFATE [Concomitant]
     Active Substance: HYDROXYCHLOROQUINE SULFATE
     Dosage: 300,MG,DAILY
     Route: 048
  7. AZATHIOPRINE SODIUM [Concomitant]
     Active Substance: AZATHIOPRINE SODIUM
     Dosage: 150,MG,DAILY
     Route: 048

REACTIONS (5)
  - Abortion induced [Unknown]
  - VACTERL syndrome [Unknown]
  - Abortion [Unknown]
  - Maternal exposure during pregnancy [Unknown]
  - Intentional product use issue [Unknown]

NARRATIVE: CASE EVENT DATE: 20200101
